FAERS Safety Report 8169178-0 (Version None)
Quarter: 2012Q1

REPORT INFORMATION
  Report Type: 
  Country: None (occurrence: None)
  Receive Date: 20120227
  Receipt Date: 20120221
  Transmission Date: 20120608
  Serious: Yes (Hospitalization, Other)
  Sender: FDA-Public Use
  Company Number: US-AMGEN-USASP2011062632

PATIENT
  Sex: Female

DRUGS (1)
  1. PROLIA [Suspect]
     Indication: OSTEOPOROSIS
     Dosage: UNK
     Dates: start: 20110804, end: 20110801

REACTIONS (4)
  - SJOGREN'S SYNDROME [None]
  - HYPOCALCAEMIA [None]
  - PAROTITIS [None]
  - APHAGIA [None]
